FAERS Safety Report 16594680 (Version 1)
Quarter: 2019Q3

REPORT INFORMATION
  Report Type: Spontaneous
  Country: US (occurrence: US)
  Receive Date: 20190718
  Receipt Date: 20190718
  Transmission Date: 20191004
  Serious: No
  Sender: FDA-Public Use
  Company Number: US-JNJFOC-20190723861

PATIENT
  Age: 52 Year
  Sex: Female
  Weight: 80.36 kg

DRUGS (2)
  1. VALACICLOVIR [Concomitant]
     Active Substance: VALACYCLOVIR HYDROCHLORIDE
     Indication: HERPES VIRUS INFECTION
     Dosage: AS NEEDED
     Route: 048
  2. XARELTO [Suspect]
     Active Substance: RIVAROXABAN
     Indication: DEEP VEIN THROMBOSIS
     Route: 048
     Dates: start: 20190426, end: 20190606

REACTIONS (3)
  - Headache [Unknown]
  - Dizziness [Unknown]
  - Malaise [Unknown]

NARRATIVE: CASE EVENT DATE: 2019
